FAERS Safety Report 5639137-8 (Version None)
Quarter: 2008Q1

REPORT INFORMATION
  Report Type: 
  Country: None (occurrence: None)
  Receive Date: 20080226
  Receipt Date: 20080215
  Transmission Date: 20080703
  Serious: Yes (Other)
  Sender: FDA-Public Use
  Company Number: GB-ROCHE-541810

PATIENT
  Age: 57 Year
  Sex: Female
  Weight: 87.2 kg

DRUGS (12)
  1. ORLISTAT [Suspect]
     Indication: WEIGHT CONTROL
     Dosage: 84 CAPSULES WERE PRESCRIBED
     Route: 048
     Dates: start: 20071008
  2. UNSPECIFIED MEDICATIONS [Concomitant]
  3. ASPIRIN [Concomitant]
     Dosage: FORM: DISPERSIBLE TABLET, 28 TABLETS WERE PRESCRIBED
  4. RAMIPRIL [Concomitant]
     Dosage: 28 CAPSULES WERE PRESCRIBED
  5. TEMAZEPAM [Concomitant]
     Dosage: DOSAGE REPORTED AS 1 N, 28 TABLETS WERE PRESCRIBED
  6. FLUTICASONE PROPIONATE INHALER [Concomitant]
     Dosage: DRUG: FLUTICASONE PROPIONATE CFC-FREE INHALER
  7. TERBUTALINE SULFATE [Concomitant]
     Dosage: DRUG: TERBUTALINE SULPHATE TURBOHALER
  8. QUININE SULPHATE [Concomitant]
     Dosage: 28 TABLETS WERE PRESCRIBED
  9. BENDROFLUMETHIAZIDE [Concomitant]
     Dosage: FREQUENCY REPORTED AS ONCE DAILY (OD), 28 TABLETS WERE PRESCRIBED
  10. BUPRENORPHINE HCL [Concomitant]
     Dosage: DRUG: BUPRENORPHINE SUBLINGUAL TABLETS SUGAR FREE, 100 TABLETS WERE PRESCRIBED
     Route: 060
  11. SALMETEROL XINAFOATE INHALER [Concomitant]
     Dosage: DRUG: SALMETEROL XINAFOATE CFC-FREE INHALER
  12. FUROSEMIDE [Concomitant]
     Dosage: DOSAGE REPORTED AS 2 M, 56 TABLETS WERE PRESCRIBED

REACTIONS (1)
  - TRANSIENT ISCHAEMIC ATTACK [None]
